FAERS Safety Report 18660321 (Version 1)
Quarter: 2020Q4

REPORT INFORMATION
  Report Type: Report from Study
  Country: GB (occurrence: GB)
  Receive Date: 20201223
  Receipt Date: 20201223
  Transmission Date: 20210114
  Serious: Yes (Other)
  Sender: FDA-Public Use
  Company Number: GB-TEVA-2020-GB-1860853

PATIENT
  Age: 34 Year
  Sex: Female

DRUGS (1)
  1. COPAXONE [Suspect]
     Active Substance: GLATIRAMER ACETATE
     Indication: MULTIPLE SCLEROSIS
     Route: 058
     Dates: start: 2020

REACTIONS (11)
  - Malaise [Recovered/Resolved]
  - Adverse drug reaction [Unknown]
  - Device delivery system issue [Unknown]
  - Fatigue [Unknown]
  - Dyspnoea [Recovered/Resolved]
  - Spinal pain [Recovered/Resolved]
  - Nausea [Recovered/Resolved]
  - Loss of control of legs [Recovered/Resolved]
  - Injection site pain [Unknown]
  - Maternal exposure during pregnancy [Unknown]
  - Syringe issue [Unknown]

NARRATIVE: CASE EVENT DATE: 2020
